FAERS Safety Report 9452346 (Version 1)
Quarter: 2013Q3

REPORT INFORMATION
  Report Type: Spontaneous
  Country: US (occurrence: US)
  Receive Date: 20130812
  Receipt Date: 20130812
  Transmission Date: 20140515
  Serious: No
  Sender: FDA-Public Use
  Company Number: US-BAYER-2013-096917

PATIENT
  Age: 1 Year
  Sex: Male
  Weight: 27.21 kg

DRUGS (1)
  1. ALEVE TABLET [Suspect]
     Dosage: UNK
     Route: 048
     Dates: start: 20130806, end: 20130806

REACTIONS (1)
  - Accidental exposure to product by child [None]
